FAERS Safety Report 7957552 (Version 3)
Quarter: 2013Q4

REPORT INFORMATION
  Report Type: Spontaneous
  Country: JP (occurrence: JP)
  Receive Date: 20110524
  Receipt Date: 20131016
  Transmission Date: 20140711
  Serious: Yes (Other)
  Sender: FDA-Public Use
  Company Number: JP-PFIZER INC-2011108317

PATIENT
  Age: 42 Year
  Sex: Female

DRUGS (2)
  1. ATARAX-P [Suspect]
     Indication: PREOPERATIVE CARE
     Dosage: UNK
     Route: 030
     Dates: start: 20110512
  2. ATROPINE SULFATE HYDRATE [Concomitant]
     Dosage: UNK
     Dates: start: 20110512

REACTIONS (1)
  - Skin necrosis [Recovered/Resolved with Sequelae]
